FAERS Safety Report 23616984 (Version 1)
Quarter: 2024Q1

REPORT INFORMATION
  Report Type: Spontaneous
  Country: US (occurrence: None)
  Receive Date: 20240309
  Receipt Date: 20240309
  Transmission Date: 20240410
  Serious: Yes (Other)
  Sender: FDA-Public Use
  Company Number: None

PATIENT
  Age: 49 Year
  Sex: Female
  Weight: 54 kg

DRUGS (4)
  1. CERAVE AM FACIAL MOISTURIZING BROAD SPECTRUM SPF 30 SUNSCREEN [Suspect]
     Active Substance: HOMOSALATE\MERADIMATE\OCTINOXATE\OCTOCRYLENE\ZINC OXIDE
     Indication: Product used for unknown indication
     Route: 061
     Dates: start: 20240212, end: 20240225
  2. Amolodipine [Concomitant]
  3. PROZAC [Concomitant]
     Active Substance: FLUOXETINE HYDROCHLORIDE
  4. VITAMINS [Concomitant]
     Active Substance: VITAMINS

REACTIONS (3)
  - Urticaria [None]
  - Skin exfoliation [None]
  - Therapy cessation [None]

NARRATIVE: CASE EVENT DATE: 20240212
